FAERS Safety Report 8449924-9 (Version None)
Quarter: 2012Q2

REPORT INFORMATION
  Report Type: 
  Country: None (occurrence: None)
  Receive Date: 20120620
  Receipt Date: 20120613
  Transmission Date: 20120825
  Serious: Yes (Hospitalization, Other)
  Sender: FDA-Public Use
  Company Number: PHHY2012ES051125

PATIENT
  Age: 58 Year
  Sex: Male

DRUGS (3)
  1. ZOMETA [Suspect]
     Indication: LUNG NEOPLASM MALIGNANT
     Route: 042
     Dates: start: 20110601
  2. CISPLATIN [Interacting]
     Indication: LUNG NEOPLASM MALIGNANT
     Route: 042
     Dates: start: 20110601
  3. PEMETREXED [Interacting]
     Indication: LUNG NEOPLASM MALIGNANT
     Dates: start: 20110601

REACTIONS (4)
  - MEAN CELL HAEMOGLOBIN CONCENTRATION DECREASED [None]
  - DRUG INTERACTION [None]
  - HAEMATOTOXICITY [None]
  - PLATELET COUNT DECREASED [None]
